FAERS Safety Report 8858414 (Version 1)
Quarter: 2012Q4

REPORT INFORMATION
  Report Type: 
  Country: CA (occurrence: CA)
  Receive Date: 20121024
  Receipt Date: 20121024
  Transmission Date: 20130627
  Serious: Yes (Other)
  Sender: FDA-Public Use
  Company Number: CA-009507513-1210CAN009383

PATIENT
  Age: 69 Year
  Sex: Male

DRUGS (2)
  1. MK-5592 [Suspect]
     Indication: EYE INFECTION FUNGAL
     Dosage: 200 mg, q6h
     Route: 048
     Dates: start: 2010
  2. CANCIDAS [Concomitant]
     Indication: EYE INFECTION FUNGAL
     Dosage: UNK
     Dates: start: 2010

REACTIONS (8)
  - Aortic valve replacement [Unknown]
  - Aortic valve incompetence [Unknown]
  - Drug ineffective [Unknown]
  - Thrombosis [Unknown]
  - Cardiac valve replacement complication [Unknown]
  - Peripheral coldness [Unknown]
  - Fungal infection [Unknown]
  - Thrombosis [None]
